FAERS Safety Report 13738664 (Version 1)
Quarter: 2017Q3

REPORT INFORMATION
  Report Type: Spontaneous
  Country: US (occurrence: US)
  Receive Date: 20170710
  Receipt Date: 20170710
  Transmission Date: 20171127
  Serious: No
  Sender: FDA-Public Use
  Company Number: US-SAOL THERAPEUTICS-2017SAO00356

PATIENT
  Sex: Female

DRUGS (2)
  1. LIORESAL [Suspect]
     Active Substance: BACLOFEN
     Indication: MUSCLE SPASTICITY
     Dosage: 35 ?G, \DAY
     Route: 037
     Dates: end: 201702
  2. LIORESAL [Suspect]
     Active Substance: BACLOFEN
     Indication: CEREBRAL PALSY
     Dosage: 38 ?G, \DAY
     Route: 037
     Dates: start: 201702

REACTIONS (7)
  - Pruritus [Unknown]
  - Cold sweat [Unknown]
  - Feeling hot [Unknown]
  - Swelling [Unknown]
  - Headache [Recovered/Resolved]
  - Muscle spasticity [Unknown]
  - Medical device site swelling [Unknown]

NARRATIVE: CASE EVENT DATE: 20161116
